FAERS Safety Report 8391908-3 (Version None)
Quarter: 2012Q2

REPORT INFORMATION
  Report Type: 
  Country: None (occurrence: None)
  Receive Date: 20120529
  Receipt Date: 20120524
  Transmission Date: 20120825
  Serious: Yes (Hospitalization)
  Sender: FDA-Public Use
  Company Number: IT-GLAXOSMITHKLINE-B0754972A

PATIENT
  Sex: Female

DRUGS (1)
  1. REQUIP [Suspect]
     Indication: PARKINSON'S DISEASE
     Route: 065
     Dates: start: 20110719, end: 20110819

REACTIONS (6)
  - LEUKOCYTOCLASTIC VASCULITIS [None]
  - DRUG HYPERSENSITIVITY [None]
  - FATIGUE [None]
  - PAPULE [None]
  - OEDEMA PERIPHERAL [None]
  - PYREXIA [None]
